FAERS Safety Report 5909327-5 (Version None)
Quarter: 2008Q4

REPORT INFORMATION
  Report Type: 
  Country: None (occurrence: None)
  Receive Date: 20081006
  Receipt Date: 20080925
  Transmission Date: 20090506
  Serious: No
  Sender: FDA-Public Use
  Company Number: JP-PFIZER INC-2008056718

PATIENT
  Sex: Male

DRUGS (6)
  1. ALDACTONE [Suspect]
     Route: 048
     Dates: start: 20070906
  2. INVESTIGATIONAL DRUG [Suspect]
     Indication: LEUKAEMIA
     Route: 048
     Dates: start: 20060914
  3. LASIX [Concomitant]
     Indication: MYALGIA
     Route: 048
     Dates: start: 20070412
  4. MYONAL [Concomitant]
     Indication: MYALGIA
     Route: 048
     Dates: start: 20060823
  5. MAGNESIUM OXIDE [Concomitant]
     Route: 048
     Dates: start: 20071025
  6. BIOFERMIN R [Concomitant]
     Route: 048
     Dates: start: 20070301

REACTIONS (1)
  - NO ADVERSE EVENT [None]
